FAERS Safety Report 8416505 (Version 4)
Quarter: 2012Q4

REPORT INFORMATION
  Report Type: 
  Country: US (occurrence: US)
  Receive Date: 20120220
  Receipt Date: 20121105
  Transmission Date: 20130627
  Serious: Yes (Other)
  Sender: FDA-Public Use
  Company Number: US-PFIZER INC-2012042184

PATIENT
  Age: 57 Year
  Sex: Female
  Weight: 83.9 kg

DRUGS (15)
  1. EFFEXOR [Suspect]
     Indication: CHRONIC FATIGUE SYNDROME
     Dosage: UNK
  2. NORVASC [Suspect]
     Indication: BLOOD PRESSURE HIGH
     Dosage: 5 mg, 1x/day
     Route: 048
  3. LIPITOR [Suspect]
     Indication: HIGH CHOLESTEROL
     Dosage: UNK, 1x/day
     Route: 048
  4. LIPITOR [Suspect]
     Dosage: 40 mg, 1x/day
     Route: 048
  5. XALATAN [Suspect]
     Indication: GLAUCOMA
     Dosage: UNK
     Dates: start: 2011
  6. XALATAN [Suspect]
     Indication: INTRAOCULAR PRESSURE INCREASED
  7. SYNTHROID [Concomitant]
     Dosage: 50 ug, UNK
  8. PROZAC [Concomitant]
     Dosage: 40 mg, UNK
  9. OMEPRAZOLE [Concomitant]
     Dosage: 20 mg, 1x/day
  10. ASPIRIN [Concomitant]
     Dosage: 81 mg, UNK
  11. IBUPROFEN [Concomitant]
     Dosage: 600 mg, as needed
  12. ALPRAZOLAM [Concomitant]
     Dosage: 0.5 mg, 2x/day
  13. TRAZODONE [Concomitant]
     Dosage: 50 mg, 1x/day
  14. ANTIVERT [Concomitant]
     Dosage: 25 mg, as needed
  15. CYCLOBENZAPRINE [Concomitant]
     Dosage: 10 mg, as needed

REACTIONS (5)
  - Cataract [Not Recovered/Not Resolved]
  - Glaucoma [Not Recovered/Not Resolved]
  - Drug ineffective [Unknown]
  - Weight increased [Unknown]
  - Nasopharyngitis [Unknown]
